FAERS Safety Report 7466857-5 (Version None)
Quarter: 2011Q2

REPORT INFORMATION
  Report Type: 
  Country: None (occurrence: None)
  Receive Date: 20110509
  Receipt Date: 20100910
  Transmission Date: 20111010
  Serious: Yes (Other)
  Sender: FDA-Public Use
  Company Number: US-ALEXION-A201001153

PATIENT
  Sex: Male

DRUGS (4)
  1. MULTI-VITAMINS [Concomitant]
     Dosage: UNK
  2. SOLIRIS [Suspect]
     Indication: PAROXYSMAL NOCTURNAL HAEMOGLOBINURIA
     Dosage: 900 MG, Q2W
     Route: 042
     Dates: start: 20070101
  3. TYLENOL (CAPLET) [Concomitant]
     Dosage: UNK, PRN
  4. AMOXICILLIN [Concomitant]
     Indication: PROPHYLAXIS
     Dosage: 500 MG, QD
     Dates: start: 20080101

REACTIONS (2)
  - SCAPULA FRACTURE [None]
  - FALL [None]
